FAERS Safety Report 20777342 (Version 1)
Quarter: 2022Q2

REPORT INFORMATION
  Report Type: Spontaneous
  Country: PL (occurrence: PL)
  Receive Date: 20220503
  Receipt Date: 20220503
  Transmission Date: 20220721
  Serious: Yes (Other)
  Sender: FDA-Public Use
  Company Number: PL-LUPIN PHARMACEUTICALS INC.-2022-06391

PATIENT
  Age: 17 Year
  Sex: Male

DRUGS (8)
  1. CEFTRIAXONE [Suspect]
     Active Substance: CEFTRIAXONE
     Indication: COVID-19
     Dosage: 2000 MG, QD
     Route: 065
  2. COVID-19 CONVALESCENT PLASMA [Suspect]
     Active Substance: COVID-19 CONVALESCENT PLASMA
     Indication: COVID-19
     Dosage: UNK (1 UNIT 200 ML)
     Route: 065
  3. ENOXAPARIN [Suspect]
     Active Substance: ENOXAPARIN
     Indication: Anticoagulant therapy
     Dosage: UNK
     Route: 065
  4. REMDESIVIR [Suspect]
     Active Substance: REMDESIVIR
     Indication: COVID-19
     Dosage: 200 MG
     Route: 065
  5. REMDESIVIR [Suspect]
     Active Substance: REMDESIVIR
     Dosage: 100 MG, DAILY, TREATMENT WAS CONTINUED FOR NEXT 4DAYS
     Route: 065
  6. DEXAMETHASONE [Suspect]
     Active Substance: DEXAMETHASONE
     Indication: COVID-19
     Dosage: 3 MG, THREE TIME A DAY
     Route: 065
  7. AMIODARONE [Concomitant]
     Active Substance: AMIODARONE
     Indication: Atrial fibrillation
     Dosage: 200 MG
     Route: 042
  8. METOPROLOL [Concomitant]
     Active Substance: METOPROLOL
     Indication: Accelerated idioventricular rhythm
     Dosage: 47.5 MG, DAILY, DOSE WAS INCREASED BY 25MG
     Route: 065

REACTIONS (2)
  - Drug ineffective for unapproved indication [Unknown]
  - Off label use [Unknown]
